FAERS Safety Report 8346070-X (Version None)
Quarter: 2012Q2

REPORT INFORMATION
  Report Type: 
  Country: None (occurrence: None)
  Receive Date: 20120509
  Receipt Date: 20120504
  Transmission Date: 20120825
  Serious: No
  Sender: FDA-Public Use
  Company Number: US-PFIZER INC-2012030335

PATIENT
  Sex: Male
  Weight: 73.923 kg

DRUGS (12)
  1. CELEBREX [Suspect]
     Indication: MUSCULOSKELETAL PAIN
     Dosage: 200 MG, 2X/DAY
     Route: 048
     Dates: start: 20120125
  2. CELEBREX [Suspect]
     Indication: PAIN IN EXTREMITY
  3. TRIAZOLAM [Suspect]
     Indication: ABNORMAL DREAMS
  4. LUMIGAN [Suspect]
     Indication: GLAUCOMA
     Dosage: UNK
     Route: 047
  5. CELEBREX [Suspect]
     Indication: CHEST PAIN
  6. BETIMOL [Suspect]
     Indication: GLAUCOMA
     Dosage: 0.25%
     Route: 047
  7. CELEBREX [Suspect]
     Indication: DISCOMFORT
  8. TRIAZOLAM [Suspect]
     Indication: SLEEP DISORDER
     Dosage: 0.25 MG, DAILY
     Route: 048
  9. CELEBREX [Suspect]
     Indication: PAIN
  10. LISINOPRIL [Concomitant]
     Indication: HYPERTENSION
     Dosage: 20 MG, 1X/DAY
  11. CELEBREX [Suspect]
     Indication: INFLAMMATION
  12. LOVASTATIN [Concomitant]
     Indication: BLOOD CHOLESTEROL INCREASED
     Dosage: 20 MG, 1X/DAY

REACTIONS (7)
  - DISCOMFORT [None]
  - POOR QUALITY SLEEP [None]
  - FATIGUE [None]
  - DRUG INEFFECTIVE [None]
  - INFLAMMATION [None]
  - HEADACHE [None]
  - PAIN [None]
